FAERS Safety Report 6805595-6 (Version None)
Quarter: 2010Q2

REPORT INFORMATION
  Report Type: 
  Country: None (occurrence: None)
  Receive Date: 20100628
  Receipt Date: 20080111
  Transmission Date: 20101027
  Serious: No
  Sender: FDA-Public Use
  Company Number: US-PFIZER INC-2008004593

PATIENT
  Sex: Female
  Weight: 109.09 kg

DRUGS (3)
  1. CADUET [Suspect]
     Indication: BLOOD CHOLESTEROL ABNORMAL
     Dosage: 10/20MG
     Dates: start: 20071201
  2. CADUET [Suspect]
     Indication: BLOOD PRESSURE ABNORMAL
  3. CORICIDIN [Concomitant]

REACTIONS (2)
  - OEDEMA PERIPHERAL [None]
  - RASH [None]
